FAERS Safety Report 22294265 (Version 2)
Quarter: 2023Q2

REPORT INFORMATION
  Report Type: Spontaneous
  Country: US (occurrence: US)
  Receive Date: 20230508
  Receipt Date: 20230616
  Transmission Date: 20230721
  Serious: No
  Sender: FDA-Public Use
  Company Number: US-ELI_LILLY_AND_COMPANY-US202305004069

PATIENT
  Sex: Male

DRUGS (4)
  1. HUMALOG [Suspect]
     Active Substance: INSULIN LISPRO
     Indication: Type 1 diabetes mellitus
     Dosage: UNK UNK, UNKNOWN
     Route: 065
     Dates: start: 1999
  2. HUMALOG [Suspect]
     Active Substance: INSULIN LISPRO
     Dosage: UNK UNK, UNKNOWN
     Route: 065
  3. LYUMJEV [Suspect]
     Active Substance: INSULIN LISPRO-AABC
     Indication: Type 1 diabetes mellitus
     Dosage: 150 U, UNKNOWN
     Route: 065
  4. LYUMJEV [Suspect]
     Active Substance: INSULIN LISPRO-AABC
     Dosage: 250 U, UNKNOWN
     Route: 065

REACTIONS (8)
  - Blood glucose increased [Unknown]
  - Blood glucose decreased [Unknown]
  - Fatigue [Unknown]
  - Subcutaneous drug absorption impaired [Unknown]
  - Muscle disorder [Unknown]
  - Confusional state [Unknown]
  - Limb discomfort [Unknown]
  - Drug ineffective [Unknown]
